FAERS Safety Report 14803857 (Version 1)
Quarter: 2018Q2

REPORT INFORMATION
  Report Type: Spontaneous
  Country: BR (occurrence: BR)
  Receive Date: 20180425
  Receipt Date: 20180425
  Transmission Date: 20180711
  Serious: Yes (Other)
  Sender: FDA-Public Use
  Company Number: BR-ROCHE-2113023

PATIENT
  Age: 40 Year
  Sex: Female

DRUGS (2)
  1. RIVOTRIL [Suspect]
     Active Substance: CLONAZEPAM
     Indication: MENTAL DISORDER
     Route: 048
  2. RIVOTRIL [Suspect]
     Active Substance: CLONAZEPAM
     Indication: MENTAL DISORDER
     Route: 065

REACTIONS (8)
  - Depression [Unknown]
  - Communication disorder [Not Recovered/Not Resolved]
  - Restlessness [Unknown]
  - Suicidal ideation [Not Recovered/Not Resolved]
  - Feeling abnormal [Unknown]
  - Panic disorder [Unknown]
  - Intentional product misuse [Unknown]
  - Binge drinking [Not Recovered/Not Resolved]

NARRATIVE: CASE EVENT DATE: 20180420
